FAERS Safety Report 16458864 (Version 1)
Quarter: 2019Q2

REPORT INFORMATION
  Report Type: Spontaneous
  Country: US (occurrence: US)
  Receive Date: 20190620
  Receipt Date: 20190620
  Transmission Date: 20190711
  Serious: No
  Sender: FDA-Public Use
  Company Number: US-THERAPEUTICSMD-2019TMD01030

PATIENT
  Sex: Female
  Weight: 113.38 kg

DRUGS (2)
  1. IMVEXXY [Suspect]
     Active Substance: ESTRADIOL
     Indication: INFECTION PROPHYLAXIS
     Dosage: 10 ?G, 1X/DAY AT NIGHT
     Route: 067
     Dates: start: 2019, end: 2019
  2. UNSPECIFIED MEDICATION TO NOT GO ^PEE-PEE^ AS MUCH [Concomitant]

REACTIONS (6)
  - Urticaria [Not Recovered/Not Resolved]
  - Off label use [Recovered/Resolved]
  - Aptyalism [Unknown]
  - Dry mouth [Unknown]
  - Throat tightness [Unknown]
  - Hypersensitivity [Not Recovered/Not Resolved]

NARRATIVE: CASE EVENT DATE: 2019
